FAERS Safety Report 25470533 (Version 3)
Quarter: 2025Q3

REPORT INFORMATION
  Report Type: Spontaneous
  Country: JP (occurrence: JP)
  Receive Date: 20250624
  Receipt Date: 20250804
  Transmission Date: 20251020
  Serious: Yes (Other)
  Sender: ACCORD
  Company Number: JP-Accord-490902

PATIENT
  Age: 67 Year
  Sex: Female
  Weight: 51.9 kg

DRUGS (8)
  1. CARBOPLATIN [Suspect]
     Active Substance: CARBOPLATIN
     Indication: Lung adenocarcinoma stage IV
  2. PEMETREXED [Suspect]
     Active Substance: PEMETREXED
     Indication: Lung adenocarcinoma stage IV
  3. DURVALUMAB [Suspect]
     Active Substance: DURVALUMAB
     Indication: Lung adenocarcinoma stage IV
  4. TREMELIMUMAB [Suspect]
     Active Substance: TREMELIMUMAB
     Indication: Lung adenocarcinoma stage IV
  5. CARBOPLATIN [Suspect]
     Active Substance: CARBOPLATIN
     Indication: HER2 mutant non-small cell lung cancer
  6. PEMETREXED [Suspect]
     Active Substance: PEMETREXED
     Indication: HER2 mutant non-small cell lung cancer
  7. TREMELIMUMAB [Suspect]
     Active Substance: TREMELIMUMAB
     Indication: HER2 mutant non-small cell lung cancer
  8. DURVALUMAB [Suspect]
     Active Substance: DURVALUMAB
     Indication: HER2 mutant non-small cell lung cancer

REACTIONS (1)
  - Adrenal insufficiency [Not Recovered/Not Resolved]
